FAERS Safety Report 23226525 (Version 1)
Quarter: 2023Q4

REPORT INFORMATION
  Report Type: Spontaneous
  Country: GB (occurrence: GB)
  Receive Date: 20231124
  Receipt Date: 20231124
  Transmission Date: 20240110
  Serious: Yes (Other)
  Sender: FDA-Public Use
  Company Number: None

PATIENT
  Age: 58 Year
  Sex: Female
  Weight: 63 kg

DRUGS (11)
  1. TRIMETHOPRIM [Suspect]
     Active Substance: TRIMETHOPRIM
     Indication: Product used for unknown indication
     Dosage: 400 MILLIGRAM DAILY; UNIT DOSE: 200 MG, BD, DURATION : 7 DAYS
     Route: 065
     Dates: start: 20231109, end: 20231116
  2. BACLOFEN [Concomitant]
     Active Substance: BACLOFEN
     Indication: Product used for unknown indication
     Dosage: 80 MILLIGRAM DAILY; 20MG AM, 20MG PM, 40MG AT NIGHT
     Dates: start: 20230321
  3. CITALOPRAM [Concomitant]
     Active Substance: CITALOPRAM HYDROBROMIDE
     Indication: Product used for unknown indication
     Dosage: ONE TO TWO TO BE TAKEN DAILY
     Dates: start: 20230321
  4. ESTRADIOL [Concomitant]
     Active Substance: ESTRADIOL
     Indication: Product used for unknown indication
     Dosage: 2 DOSAGE FORMS DAILY; APPLY PUMPS, UNIT DOSE : 2 DF, OD
     Dates: start: 20231004
  5. GABAPENTIN [Concomitant]
     Active Substance: GABAPENTIN
     Indication: Product used for unknown indication
     Dosage: 4 DOSAGE FORMS DAILY; THE MORNING AND LUNCH TIME., UNIT DOSE : 2 DF
     Dates: start: 20230321
  6. INDAPAMIDE [Concomitant]
     Active Substance: INDAPAMIDE
     Indication: Product used for unknown indication
     Dosage: 1 DOSAGE FORMS DAILY; EACH MORNING, UNIT DOSE : 1 DF, DURATION  : 148 DAYS
     Dates: start: 20230509, end: 20231004
  7. MODAFINIL [Concomitant]
     Active Substance: MODAFINIL
     Indication: Product used for unknown indication
     Dosage: 2 DOSAGE FORMS DAILY; EACH MORNING AND AT NOON, UNIT DOSE : 1 DF, BD
     Dates: start: 20230321
  8. AMDINOCILLIN PIVOXIL [Concomitant]
     Active Substance: AMDINOCILLIN PIVOXIL
     Indication: Product used for unknown indication
     Dosage: TAKE TWO FOR FIRST DOSE THEN ONE THREE TIMES A ...DURATION : 3 DAYS
     Dates: start: 20231106, end: 20231109
  9. PROGESTERONE [Concomitant]
     Active Substance: PROGESTERONE
     Indication: Product used for unknown indication
     Dosage: 2 DOSAGE FORMS DAILY; EVERY NIGHT, UNIT DOSE : 2 DF
     Dates: start: 20231004
  10. RAMIPRIL [Concomitant]
     Active Substance: RAMIPRIL
     Indication: Product used for unknown indication
     Dosage: 1 DOSAGE FORMS DAILY; UNIT DOSE : 1 DF, OD
     Dates: start: 20231004
  11. SIMVASTATIN [Concomitant]
     Active Substance: SIMVASTATIN
     Indication: Product used for unknown indication
     Dosage: 1 DOSAGE FORMS DAILY; AT NIGHT, UNIT DOSE : 1 DF
     Dates: start: 20230422

REACTIONS (2)
  - Muscle spasms [Recovered/Resolved]
  - Malaise [Unknown]
